FAERS Safety Report 15331159 (Version 1)
Quarter: 2018Q3

REPORT INFORMATION
  Report Type: Spontaneous
  Country: RU (occurrence: RU)
  Receive Date: 20180829
  Receipt Date: 20180829
  Transmission Date: 20181010
  Serious: Yes (Hospitalization, Other)
  Sender: FDA-Public Use
  Company Number: RU-ASTRAZENECA-2017SF33124

PATIENT
  Age: 87 Year
  Sex: Female
  Weight: 75 kg

DRUGS (13)
  1. PHYSIOTENS [Concomitant]
     Active Substance: MOXONIDINE
     Dosage: 0.2 MORNING AND 0.4 EVENING
  2. EGILOK [Concomitant]
     Active Substance: METOPROLOL TARTRATE
     Dosage: 12 MORNING AND 25 EVENING
  3. LEVAMLODIPINE [Concomitant]
     Active Substance: LEVAMLODIPINE
     Dosage: 2.5?5 MG,
  4. NEBILET [Concomitant]
     Active Substance: NEBIVOLOL
  5. NOLPAZA [Concomitant]
     Active Substance: PANTOPRAZOLE SODIUM
  6. HOMEOPATHIC NOS [Concomitant]
  7. BRILINTA [Suspect]
     Active Substance: TICAGRELOR
     Indication: MYOCARDIAL INFARCTION
     Route: 048
     Dates: start: 20170828
  8. ATORIS [Concomitant]
     Active Substance: ATORVASTATIN CALCIUM
  9. BRILINTA [Suspect]
     Active Substance: TICAGRELOR
     Indication: STENT PLACEMENT
     Route: 048
     Dates: start: 20170828
  10. EDARBI CLO [Concomitant]
     Dosage: 80 MG
  11. THROMBO ASS [Concomitant]
     Active Substance: ASPIRIN
  12. THERAFLEX [Concomitant]
     Active Substance: CHONDROITIN SULFATE A\GLUCOSAMINE
  13. GINKGO BILOBA [Concomitant]
     Active Substance: GINKGO

REACTIONS (6)
  - Contusion [Not Recovered/Not Resolved]
  - Off label use [Unknown]
  - Product use issue [Unknown]
  - Hypertension [Recovering/Resolving]
  - Blood pressure decreased [Recovered/Resolved]
  - Syncope [Recovered/Resolved]

NARRATIVE: CASE EVENT DATE: 20170828
